FAERS Safety Report 25821332 (Version 1)
Quarter: 2025Q3

REPORT INFORMATION
  Report Type: Spontaneous
  Country: US (occurrence: US)
  Receive Date: 20250919
  Receipt Date: 20250919
  Transmission Date: 20251021
  Serious: Yes (Hospitalization)
  Sender: RIGEL PHARMACEUTICALS
  Company Number: US-RIGEL Pharmaceuticals, INC-20250900115

PATIENT
  Age: 71 Year
  Sex: Male

DRUGS (2)
  1. GAVRETO [Suspect]
     Active Substance: PRALSETINIB
     Indication: Lung neoplasm malignant
     Dosage: 200 MG QD
     Route: 048
     Dates: start: 20240903, end: 202509
  2. GAVRETO [Suspect]
     Active Substance: PRALSETINIB
     Dosage: 200 MG QD
     Route: 048
     Dates: start: 202509

REACTIONS (2)
  - Influenza [Unknown]
  - Product prescribing issue [Unknown]

NARRATIVE: CASE EVENT DATE: 20240903
